FAERS Safety Report 4356297-X (Version None)
Quarter: 2004Q2

REPORT INFORMATION
  Report Type: 
  Country: None (occurrence: None)
  Receive Date: 20040510
  Receipt Date: 20040510
  Transmission Date: 20050107
  Serious: Yes (Hospitalization)
  Sender: FDA-Public Use
  Company Number: None

PATIENT
  Age: 29 Year
  Sex: Female

DRUGS (3)
  1. KETOROLAC TROMETHAMINE [Suspect]
     Dates: start: 20030905, end: 20030910
  2. GENTAMICIN [Suspect]
     Dosage: 80 MG IV Q 8 H
     Route: 042
     Dates: start: 20030910, end: 20030910
  3. MOTRIN [Suspect]

REACTIONS (3)
  - HYPOTENSION [None]
  - RENAL FAILURE ACUTE [None]
  - SEPSIS [None]
